FAERS Safety Report 5666620-1 (Version None)
Quarter: 2008Q1

REPORT INFORMATION
  Report Type: 
  Country: None (occurrence: None)
  Receive Date: 20080315
  Receipt Date: 20080125
  Transmission Date: 20080703
  Serious: No
  Sender: FDA-Public Use
  Company Number: US-ABBOTT-07P-163-0431174-00

PATIENT
  Sex: Female

DRUGS (7)
  1. HUMIRA [Suspect]
     Indication: RHEUMATOID ARTHRITIS
     Route: 058
     Dates: start: 20060101, end: 20061231
  2. VITAMIN TAB [Concomitant]
     Indication: PREGNANCY
     Route: 048
     Dates: start: 20070101
  3. VITAMIN TAB [Concomitant]
     Indication: PROPHYLAXIS
  4. FOLIC ACID [Concomitant]
     Indication: VITAMIN SUPPLEMENTATION
     Route: 048
     Dates: start: 20070101
  5. FISH OIL [Concomitant]
     Indication: DRUG USE FOR UNKNOWN INDICATION
     Route: 048
     Dates: start: 20070801, end: 20070922
  6. 17 HYDROXYPROGERTERONE [Concomitant]
     Indication: PREMATURE LABOUR
     Route: 050
  7. 17 HYDROXYPROGERTERONE [Concomitant]
     Indication: PROPHYLAXIS

REACTIONS (4)
  - ANAESTHETIC COMPLICATION [None]
  - CHROMOSOME ANALYSIS ABNORMAL [None]
  - HYPERTENSION [None]
  - PRE-ECLAMPSIA [None]
